FAERS Safety Report 18986065 (Version 1)
Quarter: 2021Q1

REPORT INFORMATION
  Report Type: Report from Study
  Country: DE (occurrence: DE)
  Receive Date: 20210309
  Receipt Date: 20210309
  Transmission Date: 20210420
  Serious: Yes (Other)
  Sender: FDA-Public Use
  Company Number: DE-ROCHE-2784805

PATIENT
  Age: 55 Year
  Sex: Male

DRUGS (2)
  1. COBIMETINIB. [Suspect]
     Active Substance: COBIMETINIB
     Indication: MALIGNANT MELANOMA
     Dosage: ON 26/JAN/2021, HE RECEIVED THE MOST RECENT DOSE OF COBIMETINIB.
     Route: 048
     Dates: start: 20200929
  2. VEMURAFENIB. [Suspect]
     Active Substance: VEMURAFENIB
     Indication: MALIGNANT MELANOMA
     Dosage: ON 26/JAN/2021, HE RECEIVED THE MOST RECENT DOSE OF VEMURAFENIB.
     Route: 048
     Dates: start: 20200929

REACTIONS (1)
  - Hypophosphataemia [Recovering/Resolving]

NARRATIVE: CASE EVENT DATE: 20201222
